FAERS Safety Report 6720233-9 (Version None)
Quarter: 2010Q2

REPORT INFORMATION
  Report Type: 
  Country: None (occurrence: None)
  Receive Date: 20100506
  Receipt Date: 20100427
  Transmission Date: 20101027
  Serious: Yes (Hospitalization)
  Sender: FDA-Public Use
  Company Number: 2010SP024241

PATIENT
  Age: 40 Year
  Sex: Female
  Weight: 60 kg

DRUGS (2)
  1. NUVARING [Suspect]
     Indication: METRORRHAGIA
     Dosage: QM;VAG
     Route: 067
     Dates: start: 20081001
  2. SERETIDE /01434201/ (CON.) [Concomitant]

REACTIONS (6)
  - ARTHROPATHY [None]
  - INCORRECT DRUG ADMINISTRATION DURATION [None]
  - METRORRHAGIA [None]
  - PROCEDURAL PAIN [None]
  - UTERINE LEIOMYOMA [None]
  - VULVOVAGINAL MYCOTIC INFECTION [None]
